FAERS Safety Report 12413438 (Version 8)
Quarter: 2016Q3

REPORT INFORMATION
  Report Type: Report from Study
  Country: IE (occurrence: IE)
  Receive Date: 20160527
  Receipt Date: 20160719
  Transmission Date: 20161109
  Serious: Yes (Hospitalization)
  Sender: FDA-Public Use
  Company Number: IE-ABBVIE-16P-229-1637115-00

PATIENT
  Age: 71 Year
  Sex: Female

DRUGS (11)
  1. GABAPENTIN. [Concomitant]
     Active Substance: GABAPENTIN
     Indication: ANXIETY
     Route: 048
  2. FOLIC ACID. [Concomitant]
     Active Substance: FOLIC ACID
     Indication: PRODUCT USED FOR UNKNOWN INDICATION
     Route: 048
  3. ALENDRONATE SODIUM. [Concomitant]
     Active Substance: ALENDRONATE SODIUM
     Indication: PRODUCT USED FOR UNKNOWN INDICATION
     Route: 050
  4. DUODOPA [Suspect]
     Active Substance: CARBIDOPA\LEVODOPA
     Indication: PARKINSON^S DISEASE
     Dosage: CASSETTE; CONTINUOUS
     Route: 050
     Dates: start: 20140805, end: 20140811
  5. LANSOPRAZOLE. [Concomitant]
     Active Substance: LANSOPRAZOLE
     Indication: PRODUCT USED FOR UNKNOWN INDICATION
     Route: 050
  6. CALCICHEW D3 FORTE [Concomitant]
     Active Substance: CALCIUM\CHOLECALCIFEROL
     Indication: OSTEOPENIA
     Route: 048
  7. AMITRIPTYLINE [Concomitant]
     Active Substance: AMITRIPTYLINE
     Indication: INSOMNIA
     Dosage: AT NIGHT/NOCTE
     Route: 048
  8. FOSAVANCE [Concomitant]
     Active Substance: ALENDRONATE SODIUM\CHOLECALCIFEROL
     Indication: OSTEOPOROSIS
     Dosage: 70/5600
     Route: 048
  9. ROTIGOTINE [Concomitant]
     Active Substance: ROTIGOTINE
     Indication: PARKINSON^S DISEASE
     Dosage: 2 MG/24 HOURS
     Route: 061
  10. PARACETAMOL [Concomitant]
     Active Substance: ACETAMINOPHEN
     Indication: PRODUCT USED FOR UNKNOWN INDICATION
  11. DUODOPA [Suspect]
     Active Substance: CARBIDOPA\LEVODOPA
     Dosage: CASSETTE; CONTINUOUS
     Route: 050
     Dates: start: 20140811

REACTIONS (12)
  - Biliary sepsis [Recovering/Resolving]
  - Lower respiratory tract infection [Recovered/Resolved]
  - Anaemia [Recovered/Resolved]
  - Pneumonia aspiration [Recovered/Resolved]
  - Lethargy [Not Recovered/Not Resolved]
  - Cold type haemolytic anaemia [Recovering/Resolving]
  - Cholelithiasis [Recovered/Resolved]
  - Autoimmune haemolytic anaemia [Recovering/Resolving]
  - Haemoglobin abnormal [Recovered/Resolved]
  - Dyspnoea [Recovered/Resolved]
  - Jaundice [Recovering/Resolving]
  - Bile duct obstruction [Recovering/Resolving]

NARRATIVE: CASE EVENT DATE: 20160520
